FAERS Safety Report 6100190-9 (Version None)
Quarter: 2009Q1

REPORT INFORMATION
  Report Type: 
  Country: None (occurrence: None)
  Receive Date: 20090226
  Receipt Date: 20090216
  Transmission Date: 20090719
  Serious: Yes (Hospitalization)
  Sender: FDA-Public Use
  Company Number: 1000004779

PATIENT
  Age: 84 Year
  Sex: Female

DRUGS (8)
  1. MEMANTINE HCL [Suspect]
     Indication: DEMENTIA ALZHEIMER'S TYPE
     Dosage: 20 MG (20 MG), ORAL
     Route: 048
     Dates: start: 20081120, end: 20090114
  2. PANTOZOL [Concomitant]
  3. ARCOXIA [Concomitant]
  4. FUROSEMIDE [Concomitant]
  5. LYRICA [Concomitant]
  6. KALINOR (TABLETS) [Concomitant]
  7. NOVAMINSULFON (DROPS (FOR ORAL USE)) [Concomitant]
  8. FENISTIL (DROPS (FOR ORAL USE)) [Concomitant]

REACTIONS (3)
  - AGITATION [None]
  - HYPERPHAGIA [None]
  - SLEEP DISORDER [None]
